FAERS Safety Report 8250287-2 (Version None)
Quarter: 2012Q2

REPORT INFORMATION
  Report Type: 
  Country: None (occurrence: None)
  Receive Date: 20120402
  Receipt Date: 20120321
  Transmission Date: 20120825
  Serious: Yes (Hospitalization, Other)
  Sender: FDA-Public Use
  Company Number: US-ACTELION-A-NJ2012-60969

PATIENT

DRUGS (2)
  1. CALCIUM CHANNEL BLOCKERS [Concomitant]
  2. TRACLEER [Suspect]
     Indication: PULMONARY ARTERIAL HYPERTENSION
     Dosage: UNK
     Route: 048
     Dates: start: 20120127, end: 20120301

REACTIONS (6)
  - LIVER FUNCTION TEST ABNORMAL [None]
  - SURGERY [None]
  - OSTEOMYELITIS [None]
  - CAROTID ARTERY OCCLUSION [None]
  - PNEUMONIA [None]
  - SKIN ULCER [None]
